FAERS Safety Report 18182605 (Version 1)
Quarter: 2020Q3

REPORT INFORMATION
  Report Type: Spontaneous
  Country: US (occurrence: US)
  Receive Date: 20200821
  Receipt Date: 20200821
  Transmission Date: 20201103
  Serious: No
  Sender: FDA-Public Use
  Company Number: US-BAYER-2020-157292

PATIENT
  Age: 93 Year
  Sex: Male

DRUGS (1)
  1. NUBEQA [Suspect]
     Active Substance: DAROLUTAMIDE
     Indication: PROSTATE CANCER
     Dosage: 600 MG, QD (DAILY)
     Route: 048

REACTIONS (8)
  - Myalgia [None]
  - Thinking abnormal [None]
  - Back pain [None]
  - Fatigue [None]
  - Off label use [None]
  - Peripheral swelling [None]
  - Arthralgia [None]
  - Sensory loss [None]
